FAERS Safety Report 24981780 (Version 1)
Quarter: 2025Q1

REPORT INFORMATION
  Report Type: Spontaneous
  Country: US (occurrence: None)
  Receive Date: 20250217
  Receipt Date: 20250217
  Transmission Date: 20250408
  Serious: No
  Sender: FDA-CTU
  Company Number: None

PATIENT
  Age: 56 Year
  Sex: Male

DRUGS (1)
  1. WELIREG [Suspect]
     Active Substance: BELZUTIFAN

REACTIONS (7)
  - Hypertension [None]
  - Blood glucose increased [None]
  - Hypoxia [None]
  - Myalgia [None]
  - Headache [None]
  - Fatigue [None]
  - Asthenia [None]
